FAERS Safety Report 19359686 (Version 2)
Quarter: 2021Q2

REPORT INFORMATION
  Report Type: Spontaneous
  Country: US (occurrence: US)
  Receive Date: 20210601
  Receipt Date: 20210601
  Transmission Date: 20210717
  Serious: Yes (Other)
  Sender: FDA-Public Use
  Company Number: US-EXELA PHARMA SCIENCES, LLC-2021EXL00020

PATIENT
  Age: 49 Year
  Sex: Male

DRUGS (1)
  1. NIPRIDE RTU [Suspect]
     Active Substance: SODIUM NITROPRUSSIDE
     Indication: POLYURIA
     Route: 065

REACTIONS (3)
  - Drug-disease interaction [Unknown]
  - Haemolytic anaemia [Unknown]
  - Methaemoglobinaemia [Unknown]
